FAERS Safety Report 5807134-5 (Version None)
Quarter: 2008Q3

REPORT INFORMATION
  Report Type: 
  Country: None (occurrence: None)
  Receive Date: 20080711
  Receipt Date: 20080630
  Transmission Date: 20090109
  Serious: Yes (Hospitalization)
  Sender: FDA-Public Use
  Company Number: US-WATSON-2008-03928

PATIENT
  Age: 62 Year
  Sex: Male

DRUGS (1)
  1. FORTAMET EXTENDED RELEASE (WATSON LABORATORIES) [Suspect]
     Indication: DIABETES MELLITUS
     Dosage: UNK
     Route: 065

REACTIONS (2)
  - LACTIC ACIDOSIS [None]
  - PANCREATITIS [None]
